FAERS Safety Report 11164064 (Version 1)
Quarter: 2015Q2

REPORT INFORMATION
  Report Type: Spontaneous
  Country: US (occurrence: US)
  Receive Date: 20150604
  Receipt Date: 20150604
  Transmission Date: 20150821
  Serious: Yes (Other)
  Sender: FDA-Public Use
  Company Number: US-SA-2014SA073397

PATIENT
  Age: 69 Year
  Sex: Female

DRUGS (2)
  1. LANTUS [Suspect]
     Active Substance: INSULIN GLARGINE
     Indication: TYPE 2 DIABETES MELLITUS
     Dosage: DOSE:20 UNIT(S)
     Route: 065
     Dates: start: 2013
  2. HUMALOG [Suspect]
     Active Substance: INSULIN LISPRO
     Indication: HYPERGLYCAEMIA
     Dosage: 5 UNITS OF HUMALOG DURING THE DAY IF HER SUGAR GETS TOO ?HIGH DOSE:5 UNIT(S)
     Route: 065

REACTIONS (3)
  - Hyperglycaemia [Unknown]
  - Incorrect dose administered [Unknown]
  - Hypoglycaemia [Unknown]
